FAERS Safety Report 9779799 (Version 5)
Quarter: 2014Q1

REPORT INFORMATION
  Report Type: Spontaneous
  Country: FR (occurrence: FR)
  Receive Date: 20131223
  Receipt Date: 20140130
  Transmission Date: 20141002
  Serious: Yes (Other)
  Sender: FDA-Public Use
  Company Number: FR-GLAXOSMITHKLINE-B0954177A

PATIENT
  Age: 8 Year
  Sex: Female

DRUGS (1)
  1. VENTOLINE [Suspect]
     Indication: ASTHMATIC CRISIS
     Dosage: 200MCG THREE TIMES PER DAY
     Route: 055
     Dates: start: 20131207

REACTIONS (4)
  - Dyspnoea [Recovered/Resolved]
  - Respiratory failure [Recovered/Resolved]
  - Device failure [Unknown]
  - Product quality issue [Unknown]
